FAERS Safety Report 12964695 (Version 3)
Quarter: 2017Q1

REPORT INFORMATION
  Report Type: Spontaneous
  Country: JP (occurrence: JP)
  Receive Date: 20161122
  Receipt Date: 20170315
  Transmission Date: 20170428
  Serious: Yes (Other)
  Sender: FDA-Public Use
  Company Number: JP-PFIZER INC-2016535755

PATIENT
  Age: 7 Decade
  Sex: Female

DRUGS (1)
  1. INLYTA [Suspect]
     Active Substance: AXITINIB
     Dosage: 10 MG, UNK
     Route: 048

REACTIONS (4)
  - Neoplasm progression [Unknown]
  - Dehydration [Unknown]
  - Diarrhoea [Unknown]
  - Prerenal failure [Unknown]
